FAERS Safety Report 9337731 (Version 1)
Quarter: 2013Q2

REPORT INFORMATION
  Report Type: Spontaneous
  Country: BR (occurrence: BR)
  Receive Date: 20130607
  Receipt Date: 20130607
  Transmission Date: 20140414
  Serious: No
  Sender: FDA-Public Use
  Company Number: BR-009507513-1306BRA000452

PATIENT
  Age: 40 Year
  Sex: Male
  Weight: 72 kg

DRUGS (1)
  1. NASONEX [Suspect]
     Indication: RHINITIS
     Dosage: 1 ATOMIZATION IN EACH NOSTRIL, QPM
     Route: 045
     Dates: start: 2003

REACTIONS (4)
  - Product taste abnormal [Unknown]
  - Incorrect route of drug administration [Unknown]
  - Drug ineffective [Unknown]
  - No adverse event [Unknown]
